FAERS Safety Report 9493823 (Version 3)
Quarter: 2013Q4

REPORT INFORMATION
  Report Type: Report from Study
  Country: JP (occurrence: JP)
  Receive Date: 20130902
  Receipt Date: 20131014
  Transmission Date: 20140711
  Serious: Yes (Death)
  Sender: FDA-Public Use
  Company Number: PHHY2013JP095533

PATIENT
  Age: 82 Year
  Sex: Female

DRUGS (8)
  1. RIVASTIGMIN [Suspect]
     Indication: DEMENTIA ALZHEIMER^S TYPE
     Dosage: 4.5 MG, QD
     Route: 062
     Dates: start: 20130301
  2. RISPERIDONE [Concomitant]
     Dosage: UNK UKN, UNK
     Dates: start: 20130228
  3. CELECOX [Concomitant]
     Dosage: UNK UKN, UNK
     Dates: start: 20130314
  4. ALLEGRA [Concomitant]
     Dosage: UNK UKN, UNK
     Dates: start: 20130301
  5. PARIET [Concomitant]
     Dosage: UNK UKN, UNK
     Dates: start: 20130307
  6. DIOVAN [Concomitant]
     Dosage: UNK UKN, UNK
  7. GASMOTIN [Concomitant]
     Dosage: UNK UKN, UNK
  8. MAGMITT [Concomitant]
     Dosage: UNK UKN, UNK
     Dates: start: 20130307

REACTIONS (1)
  - Sudden death [Fatal]
